FAERS Safety Report 11352306 (Version 1)
Quarter: 2015Q3

REPORT INFORMATION
  Report Type: Spontaneous
  Country: US (occurrence: US)
  Receive Date: 20150807
  Receipt Date: 20150807
  Transmission Date: 20151125
  Serious: No
  Sender: FDA-Public Use
  Company Number: US-JNJFOC-20111107530

PATIENT
  Age: 62 Year
  Weight: 54.43 kg

DRUGS (3)
  1. WOMENS ROGAINE [Suspect]
     Active Substance: MINOXIDIL
     Indication: HAIR GROWTH ABNORMAL
     Dosage: ABOUT A MONTH
     Route: 061
  2. WOMENS ROGAINE [Suspect]
     Active Substance: MINOXIDIL
     Indication: HAIR GROWTH ABNORMAL
     Route: 061
  3. VITAMIN-SUPPLEMENTS [Concomitant]
     Indication: NUTRITIONAL SUPPLEMENTATION
     Dosage: MANY YEARS
     Route: 065

REACTIONS (1)
  - Alopecia [Unknown]
